FAERS Safety Report 12551901 (Version 2)
Quarter: 2016Q3

REPORT INFORMATION
  Report Type: Report from Study
  Country: BR (occurrence: BR)
  Receive Date: 20160713
  Receipt Date: 20160722
  Transmission Date: 20161109
  Serious: Yes (Other)
  Sender: FDA-Public Use
  Company Number: BR-ASTRAZENECA-2016SE73967

PATIENT
  Age: 885 Month
  Sex: Male
  Weight: 83 kg

DRUGS (8)
  1. LIPITOR [Concomitant]
     Active Substance: ATORVASTATIN CALCIUM
     Indication: CARDIAC DISORDER
     Dates: start: 20160504
  2. CARDIZEM [Suspect]
     Active Substance: DILTIAZEM HYDROCHLORIDE
     Route: 065
     Dates: end: 201606
  3. TECTA [Suspect]
     Active Substance: PANTOPRAZOLE MAGNESIUM
     Route: 065
     Dates: end: 201606
  4. BRILINTA [Suspect]
     Active Substance: TICAGRELOR
     Indication: CARDIAC DISORDER
     Route: 048
     Dates: start: 20160613, end: 20160617
  5. BENICAR [Suspect]
     Active Substance: OLMESARTAN MEDOXOMIL
     Route: 065
     Dates: end: 201606
  6. MOTILIUM [Suspect]
     Active Substance: DOMPERIDONE
     Route: 065
     Dates: end: 201606
  7. MODURETIC 5-50 [Concomitant]
     Active Substance: AMILORIDE HYDROCHLORIDE\HYDROCHLOROTHIAZIDE
     Indication: BLOOD PRESSURE ABNORMAL
     Dosage: 25/2,5MG, DAILY
     Dates: start: 20160504
  8. CLOPIN [Concomitant]
     Active Substance: CLOPIDOGREL BISULFATE
     Indication: INFARCTION
     Dates: start: 201605

REACTIONS (3)
  - Blood pressure increased [Unknown]
  - Tachycardia [Unknown]
  - Hypersensitivity [Recovered/Resolved]

NARRATIVE: CASE EVENT DATE: 201606
